FAERS Safety Report 6109265-1 (Version None)
Quarter: 2009Q1

REPORT INFORMATION
  Report Type: 
  Country: None (occurrence: None)
  Receive Date: 20090306
  Receipt Date: 20090306
  Transmission Date: 20090719
  Serious: No
  Sender: FDA-Public Use
  Company Number: None

PATIENT
  Sex: Female
  Weight: 45 kg

DRUGS (1)
  1. CISPLATIN [Suspect]
     Dosage: 100 MG
     Dates: end: 20080116

REACTIONS (4)
  - LARYNGECTOMY [None]
  - ORAL CAVITY FISTULA [None]
  - OSTEORADIONECROSIS [None]
  - WOUND [None]
